FAERS Safety Report 5047792-9 (Version None)
Quarter: 2006Q3

REPORT INFORMATION
  Report Type: 
  Country: None (occurrence: None)
  Receive Date: 20060705
  Receipt Date: 20060619
  Transmission Date: 20061208
  Serious: Yes (Life-Threatening, Hospitalization)
  Sender: FDA-Public Use
  Company Number: APP200600172

PATIENT
  Age: 101 Year

DRUGS (1)
  1. MIDAZOLAM HCL [Suspect]
     Indication: SEDATION
     Dosage: 2-4 MG, ONCE, INTRAVENOUS
     Route: 042
     Dates: start: 20060616, end: 20060616

REACTIONS (2)
  - BRADYCARDIA [None]
  - HYPOTENSION [None]
